FAERS Safety Report 5910703-5 (Version None)
Quarter: 2008Q4

REPORT INFORMATION
  Report Type: 
  Country: None (occurrence: None)
  Receive Date: 20081006
  Receipt Date: 20081006
  Transmission Date: 20090506
  Serious: Yes (Other)
  Sender: FDA-Public Use
  Company Number: None

PATIENT
  Age: 51 Year
  Sex: Female
  Weight: 86.1834 kg

DRUGS (2)
  1. FLAGYL [Suspect]
     Indication: DIVERTICULUM
     Dosage: ONE EVERY 8 HRS  IV DRIP; ONE EVERY 8 HRS PO
     Route: 041
     Dates: start: 20080827, end: 20080901
  2. FLAGYL [Suspect]
     Indication: DIVERTICULUM
     Dosage: ONE EVERY 8 HRS  IV DRIP; ONE EVERY 8 HRS PO
     Route: 041
     Dates: start: 20080902, end: 20080909

REACTIONS (2)
  - DEAFNESS [None]
  - VERTIGO [None]
